FAERS Safety Report 18258215 (Version 1)
Quarter: 2020Q3

REPORT INFORMATION
  Report Type: Report from Study
  Country: CA (occurrence: CA)
  Receive Date: 20200911
  Receipt Date: 20200911
  Transmission Date: 20201103
  Serious: Yes (Other)
  Sender: FDA-Public Use
  Company Number: CA-JNJFOC-20200510751

PATIENT
  Age: 15 Year
  Sex: Male
  Weight: 66.9 kg

DRUGS (3)
  1. REMICADE [Suspect]
     Active Substance: INFLIXIMAB
     Dosage: DOSE INCREASED FROM 350MG TO 400MG, BUT FULL VIAL VERSUS WASTING 500MG AT EACH INFUSION
     Route: 042
  2. REMICADE [Suspect]
     Active Substance: INFLIXIMAB
     Indication: COLITIS ULCERATIVE
     Dosage: 350 MG
     Route: 042
  3. REMICADE [Suspect]
     Active Substance: INFLIXIMAB
     Dosage: 2 DOSES
     Route: 042

REACTIONS (2)
  - Weight increased [Unknown]
  - Colitis ulcerative [Unknown]
